FAERS Safety Report 23328753 (Version 1)
Quarter: 2023Q4

REPORT INFORMATION
  Report Type: Spontaneous
  Country: CR (occurrence: None)
  Receive Date: 20231221
  Receipt Date: 20231221
  Transmission Date: 20240110
  Serious: Yes (Other)
  Sender: FDA-Public Use
  Company Number: CR-ROCHE-3465202

PATIENT
  Age: 62 Year
  Sex: Male

DRUGS (1)
  1. TECENTRIQ [Suspect]
     Active Substance: ATEZOLIZUMAB
     Indication: Non-small cell lung cancer
     Dosage: THE LAST DOSE WAS GIVEN ON 15/OCT/2023.
     Route: 041
     Dates: start: 202306, end: 20231105

REACTIONS (2)
  - Diarrhoea [Recovered/Resolved]
  - Colitis ulcerative [Unknown]
